FAERS Safety Report 6997997-2 (Version None)
Quarter: 2010Q3

REPORT INFORMATION
  Report Type: 
  Country: None (occurrence: None)
  Receive Date: 20100920
  Receipt Date: 20070605
  Transmission Date: 20110219
  Serious: Yes (Other)
  Sender: FDA-Public Use
  Company Number: US-ASTRAZENECA-2006UW11246

PATIENT
  Age: 15384 Day
  Sex: Male

DRUGS (15)
  1. SEROQUEL [Suspect]
     Indication: BIPOLAR DISORDER
     Route: 048
     Dates: start: 20030101, end: 20060101
  2. SEROQUEL [Suspect]
     Dosage: 200 TO 800 MG
     Route: 048
     Dates: start: 20050301
  3. GEODON [Concomitant]
     Dates: start: 19920101, end: 20050301
  4. HALDOL [Concomitant]
  5. RISPERDAL [Concomitant]
     Dosage: 0.5 MG TWO TIMES A DAY, 2 MG EVERY MORNING
     Dates: start: 20041101, end: 20050301
  6. RISPERDAL [Concomitant]
     Dates: start: 20050101
  7. ZYPREXA [Concomitant]
     Dates: start: 19920101
  8. ZYPREXA [Concomitant]
     Dates: start: 19950101, end: 20030101
  9. DEPAKOTE [Concomitant]
     Dates: start: 20050301
  10. LITHIUM CARBONATE [Concomitant]
     Dates: start: 20050301
  11. GLUCOPHAGE [Concomitant]
     Dosage: 500 MG ONE TWO TIMES A DAY
     Route: 048
     Dates: start: 20050301
  12. GLYBURIDE [Concomitant]
     Route: 048
     Dates: start: 20050301
  13. HYDROCHLOROTHIAZIDE [Concomitant]
     Route: 048
     Dates: start: 20050301
  14. PRINIVIL [Concomitant]
     Route: 048
     Dates: start: 20050301
  15. ASPIRIN [Concomitant]
     Dates: start: 20050301

REACTIONS (2)
  - DIABETES MELLITUS [None]
  - HYPOGLYCAEMIA [None]
